FAERS Safety Report 5528725-5 (Version None)
Quarter: 2007Q4

REPORT INFORMATION
  Report Type: 
  Country: None (occurrence: None)
  Receive Date: 20071126
  Receipt Date: 20071119
  Transmission Date: 20080405
  Serious: Yes (Life-Threatening, Hospitalization, Disabling)
  Sender: FDA-Public Use
  Company Number: 2007-164750-NL

PATIENT
  Age: 40 Year
  Sex: Male
  Weight: 83.3 kg

DRUGS (1)
  1. MIRTAZAPINE [Suspect]
     Indication: DEPRESSION
     Dosage: 15 MG BW ORAL, ONCE PER 4 DAYS
     Route: 048
     Dates: start: 20030101, end: 20070923

REACTIONS (3)
  - ACUTE MYOCARDIAL INFARCTION [None]
  - REFUSAL OF TREATMENT BY PATIENT [None]
  - TRICUSPID VALVE INCOMPETENCE [None]
